FAERS Safety Report 12327767 (Version 1)
Quarter: 2016Q2

REPORT INFORMATION
  Report Type: Spontaneous
  Country: PT (occurrence: PT)
  Receive Date: 20160503
  Receipt Date: 20160503
  Transmission Date: 20160815
  Serious: Yes (Disabling)
  Sender: FDA-Public Use
  Company Number: PT-JNJFOC-20160425415

PATIENT
  Age: 28 Year
  Sex: Female
  Weight: 47 kg

DRUGS (4)
  1. TOPAMAX [Suspect]
     Active Substance: TOPIRAMATE
     Indication: RELAXATION THERAPY
     Dosage: FIRST WEEK
     Route: 048
     Dates: start: 2015, end: 2015
  2. TOPAMAX [Suspect]
     Active Substance: TOPIRAMATE
     Indication: RELAXATION THERAPY
     Dosage: 2ND TO 4TH WEEK OF SEVERAL DOSAGES 25 MG, 50 MG AND 100 MG
     Route: 048
     Dates: start: 2015, end: 2015
  3. TOPAMAX [Suspect]
     Active Substance: TOPIRAMATE
     Indication: SLEEP DISORDER THERAPY
     Dosage: FIRST WEEK
     Route: 048
     Dates: start: 2015, end: 2015
  4. TOPAMAX [Suspect]
     Active Substance: TOPIRAMATE
     Indication: SLEEP DISORDER THERAPY
     Dosage: 2ND TO 4TH WEEK OF SEVERAL DOSAGES 25 MG, 50 MG AND 100 MG
     Route: 048
     Dates: start: 2015, end: 2015

REACTIONS (16)
  - Burning sensation [Recovering/Resolving]
  - Muscle contractions involuntary [Recovering/Resolving]
  - Pain [Recovering/Resolving]
  - Muscle tightness [Recovering/Resolving]
  - Oropharyngeal pain [Recovering/Resolving]
  - Headache [Recovering/Resolving]
  - Facial pain [Recovering/Resolving]
  - Arthralgia [Recovering/Resolving]
  - Torticollis [Recovering/Resolving]
  - Off label use [Unknown]
  - Product use issue [Unknown]
  - Formication [Recovering/Resolving]
  - Myalgia [Recovering/Resolving]
  - Feeling abnormal [Recovering/Resolving]
  - Muscle rigidity [Recovering/Resolving]
  - Feeling of body temperature change [Recovering/Resolving]

NARRATIVE: CASE EVENT DATE: 2015
